FAERS Safety Report 9089880 (Version 4)
Quarter: 2015Q4

REPORT INFORMATION
  Report Type: Spontaneous
  Country: CA (occurrence: CA)
  Receive Date: 20130131
  Receipt Date: 20151221
  Transmission Date: 20160305
  Serious: Yes (Hospitalization, Other)
  Sender: FDA-Public Use
  Company Number: CA-MERCK-1301CAN014652

PATIENT
  Sex: Male

DRUGS (5)
  1. INTRON A [Suspect]
     Active Substance: INTERFERON ALFA-2B
     Dosage: 4.5 MIU, THREE TIMES WEEKLY
     Route: 065
  2. INTRON A [Suspect]
     Active Substance: INTERFERON ALFA-2B
     Indication: MYCOSIS FUNGOIDES
     Dosage: 1.5 MIU, THREE TIMES WEEKLY
     Route: 058
     Dates: start: 20121116, end: 201212
  3. INTRON A [Suspect]
     Active Substance: INTERFERON ALFA-2B
     Dosage: UNK
     Route: 065
     Dates: start: 2013
  4. INTRON A [Suspect]
     Active Substance: INTERFERON ALFA-2B
     Dosage: 3 MIU, THREE TIMES WEEKLY
     Route: 058
     Dates: start: 201408
  5. INTRON A [Suspect]
     Active Substance: INTERFERON ALFA-2B
     Dosage: 6 MIU, THREE TIMES WEEKLY
     Route: 065

REACTIONS (5)
  - Peritonitis [Unknown]
  - Fatigue [Unknown]
  - Intestinal perforation [Unknown]
  - Nausea [Unknown]
  - Mycosis fungoides recurrent [Unknown]

NARRATIVE: CASE EVENT DATE: 2012
